FAERS Safety Report 19655228 (Version 2)
Quarter: 2022Q2

REPORT INFORMATION
  Report Type: Spontaneous
  Country: GB (occurrence: GB)
  Receive Date: 20210804
  Receipt Date: 20220407
  Transmission Date: 20220720
  Serious: Yes (Other)
  Sender: FDA-Public Use
  Company Number: GB-MHRA-EYC 00256645

PATIENT
  Age: 37 Year
  Sex: Female
  Weight: 69.85 kg

DRUGS (1)
  1. CIPROFLOXACIN [Suspect]
     Active Substance: CIPROFLOXACIN
     Indication: Bronchitis
     Dosage: UNK
     Route: 048
     Dates: start: 20180321, end: 20180322

REACTIONS (7)
  - Hallucination [Recovered/Resolved with Sequelae]
  - Dizziness [Recovered/Resolved with Sequelae]
  - Dyspnoea [Recovered/Resolved with Sequelae]
  - Swelling [Recovered/Resolved with Sequelae]
  - Urticaria [Recovered/Resolved with Sequelae]
  - Hypersensitivity [Unknown]
  - Dry mouth [Recovered/Resolved with Sequelae]

NARRATIVE: CASE EVENT DATE: 20180321
